FAERS Safety Report 8392326-4 (Version None)
Quarter: 2012Q2

REPORT INFORMATION
  Report Type: 
  Country: None (occurrence: None)
  Receive Date: 20120529
  Receipt Date: 20120522
  Transmission Date: 20120825
  Serious: Yes (Death, Hospitalization, Other)
  Sender: FDA-Public Use
  Company Number: IT-ELI_LILLY_AND_COMPANY-IT201204005927

PATIENT
  Sex: Female

DRUGS (6)
  1. CORTISONE ACETATE [Concomitant]
  2. FOLIC ACID [Concomitant]
     Indication: SUPPLEMENTATION THERAPY
  3. ONDANSETRON [Concomitant]
  4. CARBOPLATIN [Concomitant]
     Indication: LUNG ADENOCARCINOMA
     Dosage: 300 MG/CYCLE, UNK
     Route: 042
     Dates: start: 20120301, end: 20120402
  5. VITAMIN B-12 [Concomitant]
  6. ALIMTA [Suspect]
     Indication: NON-SMALL CELL LUNG CANCER
     Dosage: 750 MG/CYCLE, UNKNOWN
     Route: 042
     Dates: start: 20120301, end: 20120402

REACTIONS (13)
  - DECREASED APPETITE [None]
  - DEATH [None]
  - MUCOSAL INFLAMMATION [None]
  - DYSPNOEA [None]
  - RESPIRATORY FAILURE [None]
  - THROMBOCYTOPENIA [None]
  - HYPONATRAEMIA [None]
  - DISORIENTATION [None]
  - FEBRILE NEUTROPENIA [None]
  - COUGH [None]
  - RESTLESSNESS [None]
  - ASTHENIA [None]
  - NEOPLASM PROGRESSION [None]
